FAERS Safety Report 15942067 (Version 1)
Quarter: 2019Q1

REPORT INFORMATION
  Report Type: Spontaneous
  Country: US (occurrence: US)
  Receive Date: 20190210
  Receipt Date: 20190210
  Transmission Date: 20190417
  Serious: No
  Sender: FDA-Public Use
  Company Number: US-TARO-2018TAR00591

PATIENT
  Sex: Male

DRUGS (2)
  1. CLOMIPRAMINE HCL CAPSULES 75 MG [Suspect]
     Active Substance: CLOMIPRAMINE HYDROCHLORIDE
     Dosage: UNK
     Dates: end: 2017
  2. CLOMIPRAMINE HCL CAPSULES 75 MG [Suspect]
     Active Substance: CLOMIPRAMINE HYDROCHLORIDE
     Indication: OBSESSIVE-COMPULSIVE DISORDER
     Dosage: UNK

REACTIONS (1)
  - Ejaculation failure [Not Recovered/Not Resolved]
